FAERS Safety Report 12322461 (Version 5)
Quarter: 2016Q4

REPORT INFORMATION
  Report Type: Spontaneous
  Country: US (occurrence: US)
  Receive Date: 20160502
  Receipt Date: 20161117
  Transmission Date: 20170207
  Serious: Yes (Hospitalization)
  Sender: FDA-Public Use
  Company Number: US-ACTELION-A-US2016-135255

PATIENT
  Age: 71 Year
  Sex: Female

DRUGS (3)
  1. VELETRI [Suspect]
     Active Substance: EPOPROSTENOL
     Indication: PULMONARY ARTERIAL HYPERTENSION
     Dosage: 40 NG/KG, PER MIN
     Route: 042
     Dates: start: 20101206
  2. LETAIRIS [Concomitant]
     Active Substance: AMBRISENTAN
  3. ADCIRCA [Concomitant]
     Active Substance: TADALAFIL

REACTIONS (9)
  - Fall [Unknown]
  - Palpitations [Unknown]
  - Fatigue [Unknown]
  - Pain in extremity [Unknown]
  - Device alarm issue [Unknown]
  - Peripheral swelling [Unknown]
  - Presyncope [Unknown]
  - Heart rate increased [Unknown]
  - Flushing [Unknown]

NARRATIVE: CASE EVENT DATE: 20161108
